FAERS Safety Report 8677912 (Version 3)
Quarter: 2012Q4

REPORT INFORMATION
  Report Type: 
  Country: JP (occurrence: JP)
  Receive Date: 20120723
  Receipt Date: 20120914
  Transmission Date: 20130627
  Serious: Yes (Other)
  Sender: FDA-Public Use
  Company Number: JP-ROCHE-1088369

PATIENT
  Age: 84 Year
  Sex: Male
  Weight: 63 kg

DRUGS (10)
  1. RANIBIZUMAB [Suspect]
     Indication: AGE-RELATED MACULAR DEGENERATION
     Dosage: Regimen 1
     Route: 050
     Dates: start: 20120421
  2. RANIBIZUMAB [Suspect]
     Dosage: Regimen 2
     Route: 050
     Dates: start: 20090519
  3. RANIBIZUMAB [Suspect]
     Dosage: Regimen 3
     Route: 050
     Dates: start: 20091117
  4. RANIBIZUMAB [Suspect]
     Dosage: Regimen 4
     Route: 050
     Dates: start: 20100119
  5. RANIBIZUMAB [Suspect]
     Dosage: Regimen 5
     Route: 050
     Dates: start: 20100218
  6. RANIBIZUMAB [Suspect]
     Dosage: Regimen 5
     Route: 050
  7. VERTEPORFIN [Suspect]
     Indication: AGE-RELATED MACULAR DEGENERATION
     Route: 042
     Dates: start: 20080512
  8. VERTEPORFIN [Suspect]
     Dosage: Regimen: 2
     Route: 042
     Dates: start: 20090428
  9. BEVACIZUMAB [Concomitant]
     Route: 050
     Dates: start: 20081118
  10. VIGAMOX [Concomitant]
     Route: 065
     Dates: start: 200904, end: 201004

REACTIONS (2)
  - Retinal pigment epithelial tear [Not Recovered/Not Resolved]
  - Detachment of retinal pigment epithelium [Unknown]
